FAERS Safety Report 5317246-0 (Version None)
Quarter: 2007Q2

REPORT INFORMATION
  Report Type: 
  Country: None (occurrence: None)
  Receive Date: 20070504
  Receipt Date: 20070413
  Transmission Date: 20071010
  Serious: Yes (Hospitalization)
  Sender: FDA-Public Use
  Company Number: IT-BOEHRINGER INGELHEIM PHARMACEUTICALS, INC.-2007-IT-00167IT

PATIENT
  Sex: Female

DRUGS (3)
  1. MOBIC [Suspect]
     Indication: RHEUMATOID ARTHRITIS
     Route: 048
     Dates: start: 20070407, end: 20070409
  2. METHOTREXATE [Concomitant]
  3. COTAREG [Concomitant]
     Route: 048

REACTIONS (7)
  - DIARRHOEA [None]
  - DIARRHOEA HAEMORRHAGIC [None]
  - HYPERTENSION [None]
  - RASH [None]
  - TACHYCARDIA [None]
  - TREMOR [None]
  - VISION BLURRED [None]
